FAERS Safety Report 11570313 (Version 1)
Quarter: 2015Q3

REPORT INFORMATION
  Report Type: Spontaneous
  Country: US (occurrence: US)
  Receive Date: 20150916
  Receipt Date: 20150916
  Transmission Date: 20151125
  Serious: No
  Sender: FDA-Public Use
  Company Number: US-ELI_LILLY_AND_COMPANY-US200909001188

PATIENT
  Sex: Female

DRUGS (1)
  1. FORTEO [Suspect]
     Active Substance: TERIPARATIDE
     Dates: start: 200908, end: 200908

REACTIONS (9)
  - Malaise [Unknown]
  - Pain [Unknown]
  - Nausea [Unknown]
  - Vomiting [Not Recovered/Not Resolved]
  - Diarrhoea [Unknown]
  - Hypophagia [Unknown]
  - Mass [Unknown]
  - Back pain [Unknown]
  - Migraine [Unknown]

NARRATIVE: CASE EVENT DATE: 2009
